FAERS Safety Report 11370191 (Version 1)
Quarter: 2015Q3

REPORT INFORMATION
  Report Type: Spontaneous
  Country: JP (occurrence: JP)
  Receive Date: 20150812
  Receipt Date: 20150812
  Transmission Date: 20151125
  Serious: Yes (Hospitalization)
  Sender: FDA-Public Use
  Company Number: JP-OTSUKA-2015_002732

PATIENT

DRUGS (4)
  1. LASIX M [Concomitant]
     Active Substance: FUROSEMIDE
     Indication: PRODUCT USED FOR UNKNOWN INDICATION
     Dosage: 2 DF/DAY
     Route: 042
     Dates: start: 20150325
  2. SOLDACTONE [Concomitant]
     Active Substance: CANRENOATE POTASSIUM
     Indication: PRODUCT USED FOR UNKNOWN INDICATION
     Dosage: 200 MG/DAY
     Route: 042
     Dates: start: 20150325
  3. SAMSCA [Suspect]
     Active Substance: TOLVAPTAN
     Indication: ASCITES
     Dosage: 3.75 MG/DAY
     Route: 048
     Dates: start: 20150420, end: 20150513
  4. ALDACTONE A [Concomitant]
     Active Substance: SPIRONOLACTONE
     Indication: PRODUCT USED FOR UNKNOWN INDICATION
     Dosage: 25 MG/DAY
     Route: 048
     Dates: start: 20150325

REACTIONS (1)
  - Hepatitis acute [Recovering/Resolving]

NARRATIVE: CASE EVENT DATE: 20150513
